FAERS Safety Report 18603438 (Version 7)
Quarter: 2021Q2

REPORT INFORMATION
  Report Type: Report from Study
  Country: None (occurrence: US)
  Receive Date: 20201210
  Receipt Date: 20210518
  Transmission Date: 20210717
  Serious: Yes (Other)
  Sender: FDA-Public Use
  Company Number: US-ABBVIE-20K-163-3678612-00

PATIENT
  Age: 62 Year
  Sex: Female
  Weight: 68.1 kg

DRUGS (8)
  1. TRAMADOL. [Concomitant]
     Active Substance: TRAMADOL
     Indication: PRODUCT USED FOR UNKNOWN INDICATION
  2. ASPIRIN. [Concomitant]
     Active Substance: ASPIRIN
     Indication: PRODUCT USED FOR UNKNOWN INDICATION
  3. HUMIRA [Suspect]
     Active Substance: ADALIMUMAB
     Indication: CROHN^S DISEASE
     Route: 058
     Dates: start: 20201225
  4. HUMIRA [Suspect]
     Active Substance: ADALIMUMAB
     Route: 058
  5. ZOFRAN [Concomitant]
     Active Substance: ONDANSETRON HYDROCHLORIDE
     Indication: PRODUCT USED FOR UNKNOWN INDICATION
  6. VITAMIN B [Concomitant]
     Active Substance: VITAMIN B
     Indication: PRODUCT USED FOR UNKNOWN INDICATION
  7. OXYCODONE [Concomitant]
     Active Substance: OXYCODONE
     Indication: PRODUCT USED FOR UNKNOWN INDICATION
  8. COVID?19 VACCINE NOS. [Concomitant]
     Active Substance: COVID-19 VACCINE NOS
     Indication: COVID-19 IMMUNISATION
     Dosage: MANUFACTURED: PFIZER
     Dates: start: 20210409, end: 20210409

REACTIONS (35)
  - Immunodeficiency [Recovering/Resolving]
  - Hypophagia [Recovering/Resolving]
  - Mobility decreased [Recovering/Resolving]
  - Frequent bowel movements [Not Recovered/Not Resolved]
  - Stress [Not Recovered/Not Resolved]
  - Pain in extremity [Unknown]
  - Fall [Unknown]
  - Neuralgia [Unknown]
  - Anosmia [Recovering/Resolving]
  - Pain in extremity [Recovering/Resolving]
  - Hypersensitivity [Not Recovered/Not Resolved]
  - Neuralgia [Recovering/Resolving]
  - Complication associated with device [Recovering/Resolving]
  - Joint swelling [Recovering/Resolving]
  - Dizziness [Recovered/Resolved]
  - Product dispensing error [Recovering/Resolving]
  - Feeling abnormal [Unknown]
  - Contusion [Recovering/Resolving]
  - Scar [Recovering/Resolving]
  - SARS-CoV-2 test positive [Recovering/Resolving]
  - Exposure to SARS-CoV-2 [Recovering/Resolving]
  - Ageusia [Recovering/Resolving]
  - Gait disturbance [Unknown]
  - Dizziness [Unknown]
  - Fear of disease [Not Recovered/Not Resolved]
  - Gait disturbance [Recovering/Resolving]
  - Crohn^s disease [Not Recovered/Not Resolved]
  - Device physical property issue [Recovering/Resolving]
  - Swelling [Recovering/Resolving]
  - Nausea [Recovering/Resolving]
  - Medical device site joint pain [Unknown]
  - Arthralgia [Recovering/Resolving]
  - Hypersomnia [Recovered/Resolved]
  - Headache [Recovering/Resolving]
  - Tenderness [Recovering/Resolving]

NARRATIVE: CASE EVENT DATE: 2021
